FAERS Safety Report 14394314 (Version 2)
Quarter: 2018Q1

REPORT INFORMATION
  Report Type: Report from Study
  Country: DE (occurrence: DE)
  Receive Date: 20180116
  Receipt Date: 20180125
  Transmission Date: 20180509
  Serious: Yes (Death, Hospitalization)
  Sender: FDA-Public Use
  Company Number: DE-EISAI MEDICAL RESEARCH-EC-2017-025893

PATIENT
  Age: 44 Year
  Sex: Female
  Weight: 54 kg

DRUGS (1)
  1. HALAVEN [Suspect]
     Active Substance: ERIBULIN MESYLATE
     Indication: BREAST CANCER METASTATIC
     Route: 041
     Dates: start: 20170216, end: 20170704

REACTIONS (5)
  - Polyneuropathy [Not Recovered/Not Resolved]
  - Neutropenia [Recovered/Resolved]
  - Pulmonary embolism [Recovered/Resolved]
  - Malignant neoplasm progression [Fatal]
  - Neuropathy peripheral [Not Recovered/Not Resolved]

NARRATIVE: CASE EVENT DATE: 20170222
